FAERS Safety Report 13680800 (Version 1)
Quarter: 2017Q2

REPORT INFORMATION
  Report Type: Spontaneous
  Country: CH (occurrence: CH)
  Receive Date: 20170623
  Receipt Date: 20170623
  Transmission Date: 20170830
  Serious: Yes (Hospitalization, Other)
  Sender: FDA-Public Use
  Company Number: CH-BRISTOL-MYERS SQUIBB COMPANY-BMS-2017-051880

PATIENT
  Age: 74 Year
  Sex: Male
  Weight: 73 kg

DRUGS (3)
  1. OPDIVO [Suspect]
     Active Substance: NIVOLUMAB
     Indication: MALIGNANT MELANOMA STAGE IV
     Dosage: 84 MG AM 4.4. UND AM 25.4.
     Route: 042
     Dates: start: 20170404, end: 20170425
  2. ELIQUIS [Concomitant]
     Active Substance: APIXABAN
     Indication: PRODUCT USED FOR UNKNOWN INDICATION
     Dosage: 2 TABL
     Route: 048
  3. YERVOY [Suspect]
     Active Substance: IPILIMUMAB
     Indication: MALIGNANT MELANOMA STAGE IV
     Dosage: 253 MG AM 4.4.17 UND AM 27.4.2017
     Route: 042
     Dates: start: 20170404, end: 20170427

REACTIONS (3)
  - Optic neuritis [Recovering/Resolving]
  - Optic ischaemic neuropathy [Recovering/Resolving]
  - Temporal arteritis [Recovering/Resolving]

NARRATIVE: CASE EVENT DATE: 20170518
